FAERS Safety Report 16547035 (Version 1)
Quarter: 2019Q3

REPORT INFORMATION
  Report Type: Spontaneous
  Country: PL (occurrence: PL)
  Receive Date: 20190709
  Receipt Date: 20190709
  Transmission Date: 20191004
  Serious: Yes (Other)
  Sender: FDA-Public Use
  Company Number: PL-TEVA-2019-PL-1074203

PATIENT
  Age: 80 Year
  Sex: Female

DRUGS (3)
  1. SUMAMED [Suspect]
     Active Substance: AZITHROMYCIN ANHYDROUS
     Indication: NASOPHARYNGITIS
     Route: 048
     Dates: start: 20190204, end: 20190205
  2. ENARENAL [Concomitant]
     Active Substance: ENALAPRIL
  3. LETROX [Concomitant]
     Active Substance: LEVOTHYROXINE SODIUM
     Dosage: THERAPY ONGOING

REACTIONS (23)
  - Flatulence [Unknown]
  - Neck pain [Unknown]
  - Micturition urgency [Unknown]
  - Oedema peripheral [Unknown]
  - Pruritus [Unknown]
  - Vision blurred [Unknown]
  - Fatigue [Unknown]
  - Abdominal pain [Unknown]
  - Hyperhidrosis [Unknown]
  - Musculoskeletal stiffness [Unknown]
  - Renal pain [Unknown]
  - Dry mouth [Unknown]
  - Urinary tract disorder [Unknown]
  - Pain in extremity [Unknown]
  - Nausea [Unknown]
  - Eructation [Unknown]
  - Paraesthesia [Unknown]
  - Arthralgia [Unknown]
  - Hypoacusis [Unknown]
  - Diarrhoea [Unknown]
  - Headache [Unknown]
  - Hypoaesthesia [Unknown]
  - Labile blood pressure [Unknown]

NARRATIVE: CASE EVENT DATE: 20190205
